FAERS Safety Report 7443961-9 (Version None)
Quarter: 2011Q2

REPORT INFORMATION
  Report Type: 
  Country: None (occurrence: None)
  Receive Date: 20110429
  Receipt Date: 20091222
  Transmission Date: 20111010
  Serious: No
  Sender: FDA-Public Use
  Company Number: 2009BI041949

PATIENT
  Sex: Female

DRUGS (2)
  1. STEROIDS (NOS) [Concomitant]
     Indication: PREMEDICATION
  2. TYSABRI [Suspect]
     Indication: MULTIPLE SCLEROSIS
     Route: 042
     Dates: start: 20090120

REACTIONS (6)
  - WEIGHT INCREASED [None]
  - ABNORMAL DREAMS [None]
  - URINARY TRACT INFECTION [None]
  - MEMORY IMPAIRMENT [None]
  - ANXIETY [None]
  - ARTHRALGIA [None]
